FAERS Safety Report 9429416 (Version 1)
Quarter: 2013Q3

REPORT INFORMATION
  Report Type: Spontaneous
  Country: US (occurrence: US)
  Receive Date: 20130730
  Receipt Date: 20130730
  Transmission Date: 20140515
  Serious: No
  Sender: FDA-Public Use
  Company Number: US-ABBOTT-13P-163-1056701-00

PATIENT
  Sex: Male
  Weight: 94.43 kg

DRUGS (3)
  1. NIASPAN (COATED) [Suspect]
     Indication: BLOOD CHOLESTEROL ABNORMAL
     Dates: start: 20130225
  2. LIVALO [Concomitant]
     Indication: BLOOD CHOLESTEROL
  3. METPROLOL [Concomitant]
     Indication: PRODUCT USED FOR UNKNOWN INDICATION
     Dosage: 12.5 MG

REACTIONS (4)
  - Feeling hot [Unknown]
  - Paraesthesia [Unknown]
  - Rash [Unknown]
  - Paraesthesia [Unknown]
